FAERS Safety Report 14658400 (Version 1)
Quarter: 2018Q1

REPORT INFORMATION
  Report Type: Spontaneous
  Country: US (occurrence: US)
  Receive Date: 20180320
  Receipt Date: 20180320
  Transmission Date: 20180509
  Serious: No
  Sender: FDA-Public Use
  Company Number: US-PFIZER INC-2018112232

PATIENT
  Age: 64 Year

DRUGS (1)
  1. DOFETILIDE. [Suspect]
     Active Substance: DOFETILIDE
     Indication: CARDIAC DISORDER
     Dosage: UNK

REACTIONS (4)
  - Chest discomfort [Unknown]
  - Fatigue [Unknown]
  - Malaise [Unknown]
  - Blood pressure increased [Unknown]
